FAERS Safety Report 16138997 (Version 1)
Quarter: 2019Q2

REPORT INFORMATION
  Report Type: Other
  Country: None (occurrence: FR)
  Receive Date: 20190401
  Receipt Date: 20190401
  Transmission Date: 20190711
  Serious: Yes (Hospitalization)
  Sender: FDA-Public Use
  Company Number: FR-EMCURE PHARMACEUTICALS LTD-2019-EPL-0146

PATIENT
  Age: 54 Year
  Sex: Female

DRUGS (8)
  1. LANSOPRAZOLE. [Suspect]
     Active Substance: LANSOPRAZOLE
     Indication: PRODUCT USED FOR UNKNOWN INDICATION
     Dosage: UNK
     Route: 048
     Dates: start: 20190121
  2. NIVESTIM [Suspect]
     Active Substance: FILGRASTIM
     Indication: LEUKOPENIA
     Dosage: UNK
     Route: 041
     Dates: start: 20190121
  3. BICNU [Suspect]
     Active Substance: CARMUSTINE
     Indication: B-CELL LYMPHOMA
     Dosage: 500 MILLIGRAM
     Route: 041
     Dates: start: 20190110, end: 20190110
  4. CYTARABINE. [Suspect]
     Active Substance: CYTARABINE
     Indication: B-CELL LYMPHOMA
     Dosage: 340 MILLIGRAM
     Route: 041
     Dates: start: 20190110, end: 20190113
  5. METRONIDAZOLE. [Suspect]
     Active Substance: METRONIDAZOLE
     Indication: PRODUCT USED FOR UNKNOWN INDICATION
     Dosage: UNK
     Dates: start: 20190125, end: 20190127
  6. HYDROCORTISONE. [Suspect]
     Active Substance: HYDROCORTISONE
     Indication: PRODUCT USED FOR UNKNOWN INDICATION
     Dosage: UNK
     Dates: start: 20190116
  7. ETOPOSIDE. [Suspect]
     Active Substance: ETOPOSIDE
     Indication: B-CELL LYMPHOMA
     Dosage: 172 MILLIGRAM
     Route: 041
     Dates: start: 20190110, end: 20190113
  8. AZTREONAM. [Suspect]
     Active Substance: AZTREONAM
     Indication: INFECTION
     Dosage: UNK
     Route: 041
     Dates: start: 20190122, end: 20190129

REACTIONS (3)
  - Pruritus [Recovering/Resolving]
  - Rash [Recovering/Resolving]
  - Rash vesicular [Recovering/Resolving]

NARRATIVE: CASE EVENT DATE: 20190114
